FAERS Safety Report 12949601 (Version 1)
Quarter: 2016Q4

REPORT INFORMATION
  Report Type: Spontaneous
  Country: HR (occurrence: HR)
  Receive Date: 20161117
  Receipt Date: 20161117
  Transmission Date: 20170207
  Serious: Yes (Hospitalization, Other)
  Sender: FDA-Public Use
  Company Number: HR-TEVA-712029ACC

PATIENT
  Age: 18 Year
  Sex: Female

DRUGS (1)
  1. RISSET [Suspect]
     Active Substance: RISPERIDONE
     Route: 048
     Dates: start: 20160820

REACTIONS (2)
  - Suicide attempt [Unknown]
  - No adverse event [Unknown]

NARRATIVE: CASE EVENT DATE: 20160820
